FAERS Safety Report 16186955 (Version 3)
Quarter: 2019Q2

REPORT INFORMATION
  Report Type: Spontaneous
  Country: US (occurrence: US)
  Receive Date: 20190411
  Receipt Date: 20190530
  Transmission Date: 20190711
  Serious: Yes (Other)
  Sender: FDA-Public Use
  Company Number: US-009507513-1904USA001139

PATIENT
  Age: 23 Year
  Sex: Female
  Weight: 85.71 kg

DRUGS (5)
  1. NEXPLANON [Suspect]
     Active Substance: ETONOGESTREL
     Dosage: 1 IMPLANT
     Dates: start: 20190403
  2. MINIVELLE [Concomitant]
     Active Substance: ESTRADIOL
     Indication: DYSFUNCTIONAL UTERINE BLEEDING
     Dosage: 0.1 MILLIGRAM, UNK; ROUTE:PATCH
     Dates: start: 201903, end: 201904
  3. PERCOCET [Concomitant]
     Active Substance: ACETAMINOPHEN\OXYCODONE HYDROCHLORIDE
     Indication: POSTOPERATIVE ANALGESIA
     Dosage: STRENGTH: 5/325 (UNITS NOT PROVIDED)
     Route: 048
     Dates: start: 20190403
  4. NEXPLANON [Suspect]
     Active Substance: ETONOGESTREL
     Dosage: 1 IMPLANT
     Dates: start: 201708, end: 20190403
  5. VYVANSE [Concomitant]
     Active Substance: LISDEXAMFETAMINE DIMESYLATE
     Dosage: 50 MILLIGRAM, QD
     Route: 048

REACTIONS (8)
  - Complication of device removal [Recovered/Resolved]
  - Device deployment issue [Recovered/Resolved]
  - Device dislocation [Recovered/Resolved]
  - General anaesthesia [Unknown]
  - Metrorrhagia [Not Recovered/Not Resolved]
  - Menstruation irregular [Recovering/Resolving]
  - Complication associated with device [Recovered/Resolved]
  - Dysfunctional uterine bleeding [Recovered/Resolved]

NARRATIVE: CASE EVENT DATE: 2019
